FAERS Safety Report 4385781-8 (Version None)
Quarter: 2004Q2

REPORT INFORMATION
  Report Type: 
  Country: None (occurrence: None)
  Receive Date: 20040623
  Receipt Date: 20020524
  Transmission Date: 20050107
  Serious: Yes (Other)
  Sender: FDA-Public Use
  Company Number: MAG-2002-0000019

PATIENT
  Sex: Male

DRUGS (3)
  1. THEOPHYLLINE [Suspect]
     Dosage: 8 MG/KG, DAILY, ORAL
     Route: 048
  2. CHLOROTHIAZIDE [Concomitant]
  3. SPIRONOLACTONE [Concomitant]

REACTIONS (2)
  - HYPONATRAEMIA [None]
  - INAPPROPRIATE ANTIDIURETIC HORMONE SECRETION [None]
